FAERS Safety Report 7619631-0 (Version None)
Quarter: 2011Q3

REPORT INFORMATION
  Report Type: 
  Country: None (occurrence: None)
  Receive Date: 20110719
  Receipt Date: 20091031
  Transmission Date: 20111222
  Serious: Yes (Other)
  Sender: FDA-Public Use
  Company Number: US-BAYER-200937884NA

PATIENT
  Age: 31 Year
  Sex: Male
  Weight: 93 kg

DRUGS (25)
  1. TRASYLOL [Suspect]
     Indication: HEART VALVE REPLACEMENT
     Dosage: 200 ML OF LOADING DOSE
     Route: 042
     Dates: start: 20050630, end: 20050630
  2. NIMBEX [Concomitant]
     Dosage: 40 MG
     Route: 042
     Dates: start: 20050630
  3. PLASMA [Concomitant]
     Dosage: 2 U, ONCE
     Route: 042
     Dates: start: 20050630
  4. LEVAQUIN [Concomitant]
     Dosage: 500 MG, BID
     Route: 048
  5. SODIUM BICARBONATE [Concomitant]
     Dosage: 50 MILLIEQUIVALENTS
     Route: 042
     Dates: start: 20050630
  6. VITAMIN K TAB [Concomitant]
     Dosage: 2 MG
     Route: 042
     Dates: start: 20050704
  7. KEFLEX [Concomitant]
     Dosage: 500 MG
     Route: 048
  8. VERSED [Concomitant]
     Dosage: 2 MG
     Route: 042
     Dates: start: 20050630
  9. INSULIN [Concomitant]
     Dosage: UNK
     Route: 042
     Dates: start: 20050630
  10. NITROGLYCERIN [Concomitant]
     Dosage: 9
     Route: 042
     Dates: start: 20050630
  11. LASIX [Concomitant]
     Dosage: 20 MG
     Route: 042
     Dates: start: 20050630
  12. ANCEF [Concomitant]
     Dosage: 2 GRAM
     Route: 042
     Dates: start: 20050630
  13. MAGNESIUM SULFATE [Concomitant]
     Dosage: 2 GRAMS
     Route: 042
     Dates: start: 20050630
  14. CALCIUM CHLORIDE [Concomitant]
     Dosage: 2 GRAMS
     Route: 042
     Dates: start: 20050630
  15. TAGAMET [Concomitant]
     Dosage: 300 MG
     Route: 042
     Dates: start: 20050630
  16. PLATELETS [Concomitant]
     Dosage: 1 U, ONCE
     Route: 042
     Dates: start: 20050630
  17. DOXYCYCLINE HYCLATE [Concomitant]
     Route: 048
  18. TRASYLOL [Suspect]
     Indication: PRODUCT USED FOR UNKNOWN INDICATION
     Dosage: 1 ML INITIAL TEST DOSE
     Dates: start: 20050630, end: 20050630
  19. TRASYLOL [Suspect]
     Dosage: 50 ML/HOUR INFUSION
     Dates: start: 20050630, end: 20050630
  20. FENTANYL-100 [Concomitant]
     Dosage: 2 ML
     Route: 042
     Dates: start: 20050630
  21. HEPARIN [Concomitant]
     Dosage: 27,000 UNITS
     Route: 042
     Dates: start: 20050630
  22. HEPARIN [Concomitant]
     Dosage: 10,000 UNITS
     Route: 042
     Dates: start: 20050630
  23. ALBUMIN (HUMAN) [Concomitant]
     Dosage: 100
     Route: 042
     Dates: start: 20050630
  24. COUMADIN [Concomitant]
     Dosage: UNK
     Dates: start: 20050702
  25. DIPRIVAN [Concomitant]
     Dosage: 65 ML
     Route: 042
     Dates: start: 20050630

REACTIONS (12)
  - INJURY [None]
  - STRESS [None]
  - MULTI-ORGAN FAILURE [None]
  - CARDIAC FAILURE [None]
  - UNEVALUABLE EVENT [None]
  - FEAR [None]
  - PAIN [None]
  - RENAL INJURY [None]
  - ANXIETY [None]
  - RENAL FAILURE [None]
  - RENAL IMPAIRMENT [None]
  - EMOTIONAL DISTRESS [None]
